FAERS Safety Report 6330481-8 (Version None)
Quarter: 2009Q3

REPORT INFORMATION
  Report Type: 
  Country: None (occurrence: None)
  Receive Date: 20090827
  Receipt Date: 20090119
  Transmission Date: 20100115
  Serious: No
  Sender: FDA-Public Use
  Company Number: A0764932A

PATIENT
  Sex: Female

DRUGS (1)
  1. ACYCLOVIR [Suspect]
     Route: 065

REACTIONS (2)
  - CONDITION AGGRAVATED [None]
  - POST HERPETIC NEURALGIA [None]
